FAERS Safety Report 4338269-4 (Version None)
Quarter: 2004Q2

REPORT INFORMATION
  Report Type: 
  Country: None (occurrence: None)
  Receive Date: 20040409
  Receipt Date: 20040330
  Transmission Date: 20050107
  Serious: Yes (Life-Threatening, Hospitalization, Other)
  Sender: FDA-Public Use
  Company Number: GBWYE677831MAR04

PATIENT
  Age: 19 Year
  Sex: Female

DRUGS (1)
  1. ADVIL [Suspect]
     Dosage: 360 MG; ORAL
     Route: 048
     Dates: start: 20040315, end: 20040315

REACTIONS (4)
  - EYELID OEDEMA [None]
  - HYPERSENSITIVITY [None]
  - OVERDOSE [None]
  - SWELLING FACE [None]
